FAERS Safety Report 8462502-0 (Version None)
Quarter: 2012Q2

REPORT INFORMATION
  Report Type: 
  Country: None (occurrence: None)
  Receive Date: 20120625
  Receipt Date: 20120621
  Transmission Date: 20120825
  Serious: Yes (Disabling, Other)
  Sender: FDA-Public Use
  Company Number: PHHY2012NL041329

PATIENT
  Sex: Female
  Weight: 41 kg

DRUGS (6)
  1. XYREM [Concomitant]
     Indication: NARCOLEPSY
     Dosage: 3 ML BID PER NIGHT
     Route: 048
  2. ONBREZ [Suspect]
     Indication: CHRONIC OBSTRUCTIVE PULMONARY DISEASE
     Dosage: 150 UG, 1 INHALATION ONCE DAILY
     Dates: start: 20120416
  3. ALVESCO [Concomitant]
     Dosage: 1 DF, ONCE DAILY
  4. CAD [Concomitant]
     Dosage: 500MG/44 IU ONE SACKET ORALLY TWICE DAILY
     Route: 048
  5. ALENDRONATE SODIUM [Concomitant]
     Indication: BONE DISORDER
     Dosage: 1 DF, ONCE PER WEEK
     Route: 048
  6. ALBUTEROL [Concomitant]

REACTIONS (7)
  - HYPOTONIA [None]
  - EMOTIONAL DISORDER [None]
  - CATAPLEXY [None]
  - SLEEP DISORDER [None]
  - MUSCLE SPASMS [None]
  - ASTHENIA [None]
  - CONDITION AGGRAVATED [None]
